FAERS Safety Report 5190028-9 (Version None)
Quarter: 2006Q4

REPORT INFORMATION
  Report Type: 
  Country: None (occurrence: None)
  Receive Date: 20061215
  Receipt Date: 20061128
  Transmission Date: 20070319
  Serious: Yes (Death)
  Sender: FDA-Public Use
  Company Number: 0610026

PATIENT
  Age: 3 Month
  Sex: Male

DRUGS (1)
  1. NITISINONE/COMPASS.USE [Suspect]
     Indication: TYROSINAEMIA
     Dosage: 1 MG/KG MG/KG/DAY ORAL
     Route: 048
     Dates: start: 20060701, end: 20060924

REACTIONS (1)
  - INFECTION [None]
